FAERS Safety Report 14589492 (Version 4)
Quarter: 2020Q3

REPORT INFORMATION
  Report Type: Report from Study
  Country: CN (occurrence: CN)
  Receive Date: 20180302
  Receipt Date: 20181214
  Transmission Date: 20201104
  Serious: Yes (Death, Hospitalization)
  Sender: FDA-Public Use
  Company Number: CN-ASTRAZENECA-2018SE26078

PATIENT
  Age: 22493 Day
  Sex: Male

DRUGS (13)
  1. LACIPIL [Concomitant]
     Active Substance: LACIDIPINE
     Indication: HYPERTENSION
     Route: 048
  2. CEFUROXIME SODIUM. [Concomitant]
     Active Substance: CEFUROXIME SODIUM
     Indication: WHITE BLOOD CELL COUNT DECREASED
     Route: 042
     Dates: start: 20180222, end: 20180222
  3. DIPROPHYLLINE [Concomitant]
     Active Substance: DYPHYLLINE
     Indication: ASTHMA
     Route: 042
     Dates: start: 20180222, end: 20180222
  4. PANTOPRAZOLE SODIUM. [Concomitant]
     Active Substance: PANTOPRAZOLE SODIUM
     Indication: GASTROINTESTINAL MUCOSAL DISORDER
     Route: 042
     Dates: start: 20180222, end: 20180222
  5. CONCENTRATED SODIUM CHLORIDE INJECTION [Concomitant]
     Indication: BLOOD SODIUM DECREASED
     Route: 042
     Dates: start: 20180222, end: 20180225
  6. AZTREONAM. [Concomitant]
     Active Substance: AZTREONAM
     Indication: WHITE BLOOD CELL COUNT DECREASED
     Route: 042
     Dates: start: 20180222, end: 20180222
  7. MEDI4736 [Suspect]
     Active Substance: DURVALUMAB
     Indication: NON-SMALL CELL LUNG CANCER
     Route: 042
     Dates: start: 20180203, end: 20180203
  8. TREMELIMUMAB. [Suspect]
     Active Substance: TREMELIMUMAB
     Indication: NON-SMALL CELL LUNG CANCER
     Route: 042
     Dates: start: 20180203, end: 20180203
  9. LEVOCARNITINE. [Concomitant]
     Active Substance: LEVOCARNITINE
     Indication: CARDIOMYOPATHY
     Route: 042
     Dates: start: 20180222, end: 20180222
  10. VITAMIN B6 [Concomitant]
     Active Substance: PYRIDOXINE HYDROCHLORIDE
     Indication: NUTRITIONAL SUPPLEMENTATION
     Dosage: 300.0MG ONCE/SINGLE ADMINISTRATION
     Route: 042
     Dates: start: 20180222, end: 20180225
  11. SODIUM CHLORIDE COMPOUND INJECTION [Concomitant]
     Indication: BLOOD SODIUM DECREASED
     Route: 042
     Dates: start: 20180222, end: 20180225
  12. CREATINE PHOSPHATE [Concomitant]
     Active Substance: PHOSPHOCREATINE
     Indication: CARDIOMYOPATHY
     Route: 042
     Dates: start: 20180222, end: 20180222
  13. GINSENG [Concomitant]
     Active Substance: ASIAN GINSENG
     Indication: ALANINE AMINOTRANSFERASE INCREASED
     Route: 042
     Dates: start: 20180222, end: 20180222

REACTIONS (2)
  - Metabolic acidosis [Fatal]
  - Hypoxia [Fatal]

NARRATIVE: CASE EVENT DATE: 20180225
